FAERS Safety Report 6815358-3 (Version None)
Quarter: 2010Q3

REPORT INFORMATION
  Report Type: 
  Country: None (occurrence: None)
  Receive Date: 20100702
  Receipt Date: 20100621
  Transmission Date: 20110219
  Serious: Yes (Hospitalization, Other)
  Sender: FDA-Public Use
  Company Number: US-ELI_LILLY_AND_COMPANY-US201004007796

PATIENT
  Sex: Female
  Weight: 97.506 kg

DRUGS (16)
  1. BYETTA [Suspect]
     Indication: TYPE 2 DIABETES MELLITUS
     Dosage: 5 UG, 2/D
     Route: 058
     Dates: start: 20060101, end: 20090101
  2. BYETTA [Suspect]
     Dosage: 10 UG, 2/D
     Route: 058
     Dates: start: 20090101, end: 20090101
  3. BYETTA [Suspect]
     Dosage: 5 UG, 2/D
     Route: 058
     Dates: start: 20090101
  4. PRILOSEC [Concomitant]
     Dosage: 20 MG, 2/D
     Route: 048
  5. GLUCOTROL [Concomitant]
     Indication: TYPE 2 DIABETES MELLITUS
     Dosage: 10 MG, DAILY (1/D)
     Route: 048
  6. METFORMIN HCL [Concomitant]
     Indication: TYPE 2 DIABETES MELLITUS
     Dosage: 2000 MG, DAILY (1/D)
     Route: 048
  7. LANTUS [Concomitant]
     Indication: TYPE 2 DIABETES MELLITUS
     Dosage: 16 U, 2/D
     Route: 058
  8. LISINOPRIL [Concomitant]
     Dosage: 20 MG, DAILY (1/D)
     Route: 048
  9. COZAAR [Concomitant]
     Dosage: 100 MG, DAILY (1/D)
     Route: 048
  10. HYDROCHLOROTHIAZIDE [Concomitant]
     Dosage: 25 MG, DAILY (1/D)
     Route: 048
  11. LIPITOR [Concomitant]
     Dosage: 20 MG, DAILY (1/D)
     Route: 048
  12. SYNTHROID [Concomitant]
     Dosage: 100 UG, DAILY (1/D)
     Route: 048
  13. ASPIRIN [Concomitant]
     Dosage: 81 MG, DAILY (1/D)
     Route: 048
  14. FISH OIL [Concomitant]
     Dosage: 1000 MG, 2/D
     Route: 048
  15. ALBUTEROL [Concomitant]
     Dosage: UNK, AS NEEDED
     Route: 055
  16. QVAR 40 [Concomitant]
     Dosage: 40 MG, 2/D
     Route: 055

REACTIONS (7)
  - ANAEMIA [None]
  - DEPRESSION [None]
  - EXOSTOSIS [None]
  - GLAUCOMA [None]
  - PAIN [None]
  - PARAESTHESIA [None]
  - POST PROCEDURAL INFECTION [None]
